FAERS Safety Report 14368174 (Version 3)
Quarter: 2020Q3

REPORT INFORMATION
  Report Type: Spontaneous
  Country: US (occurrence: US)
  Receive Date: 20180109
  Receipt Date: 20200921
  Transmission Date: 20201102
  Serious: No
  Sender: FDA-Public Use
  Company Number: US-PFIZER INC-2018009444

PATIENT
  Age: 81 Year
  Sex: Male
  Weight: 76.2 kg

DRUGS (1)
  1. XELJANZ XR [Suspect]
     Active Substance: TOFACITINIB CITRATE
     Indication: ARTHRITIS
     Dosage: 11 MG, 1X/DAY
     Route: 048
     Dates: end: 201912

REACTIONS (3)
  - False positive tuberculosis test [Unknown]
  - Amnesia [Unknown]
  - Infection [Unknown]

NARRATIVE: CASE EVENT DATE: 201912
